FAERS Safety Report 14821542 (Version 1)
Quarter: 2018Q2

REPORT INFORMATION
  Report Type: Spontaneous
  Country: SE (occurrence: SE)
  Receive Date: 20180427
  Receipt Date: 20180427
  Transmission Date: 20180711
  Serious: Yes (Hospitalization)
  Sender: FDA-Public Use
  Company Number: SE-BIOVITRUM-2018SE0446

PATIENT
  Age: 4 Year
  Sex: Male
  Weight: 20 kg

DRUGS (6)
  1. KINERET [Suspect]
     Active Substance: ANAKINRA
     Dosage: 100 MG EVERY SECOND DAY
     Dates: start: 20170806, end: 201709
  2. KINERET [Suspect]
     Active Substance: ANAKINRA
     Dosage: 100 MG (5 MG/KG) ONCE DAILY
     Dates: start: 20170511, end: 20170703
  3. KINERET [Suspect]
     Active Substance: ANAKINRA
     Indication: STILL^S DISEASE
     Dosage: 50 MG EVERY SECOND DAY
     Dates: start: 20170728, end: 20170806
  4. KINERET [Suspect]
     Active Substance: ANAKINRA
     Dosage: 100 MG EVERY THIRD DAY
     Dates: start: 201709, end: 20180110
  5. KINERET [Suspect]
     Active Substance: ANAKINRA
     Dosage: 100 MG EVERY SECOND DAY
     Dates: start: 20170703, end: 20170728
  6. CORTISONE [Concomitant]
     Active Substance: CORTISONE\HYDROCORTISONE

REACTIONS (3)
  - Eosinophilia [Recovered/Resolved]
  - Pyrexia [Recovered/Resolved]
  - Infection [Recovered/Resolved]

NARRATIVE: CASE EVENT DATE: 20170806
